FAERS Safety Report 18301891 (Version 3)
Quarter: 2021Q1

REPORT INFORMATION
  Report Type: Spontaneous
  Country: JP (occurrence: JP)
  Receive Date: 20200923
  Receipt Date: 20210324
  Transmission Date: 20210419
  Serious: Yes (Death, Other)
  Sender: FDA-Public Use
  Company Number: JP-PFIZER INC-2020363396

PATIENT
  Sex: Female
  Weight: 40 kg

DRUGS (6)
  1. MEROPEN [Suspect]
     Active Substance: MEROPENEM
     Indication: SEPSIS
  2. DENOSINE [GANCICLOVIR] [Concomitant]
     Active Substance: GANCICLOVIR
     Dosage: UNK
  3. AMBISOME [Suspect]
     Active Substance: AMPHOTERICIN B
     Indication: MUCORMYCOSIS
     Dosage: 200 MG, 1X/DAY
     Route: 041
     Dates: start: 20200201
  4. SERENACE [Suspect]
     Active Substance: HALOPERIDOL
     Dosage: UNK
  5. FUNGUARD [Suspect]
     Active Substance: MICAFUNGIN SODIUM
     Dosage: UNK
     Route: 041
  6. MEROPEN [Suspect]
     Active Substance: MEROPENEM
     Indication: PNEUMONIA
     Dosage: 3 G, 1X/DAY
     Route: 041

REACTIONS (2)
  - Death [Fatal]
  - Cytomegalovirus infection [Unknown]
